FAERS Safety Report 25662932 (Version 2)
Quarter: 2025Q3

REPORT INFORMATION
  Report Type: Spontaneous
  Country: EU (occurrence: EU)
  Receive Date: 20250811
  Receipt Date: 20250811
  Transmission Date: 20251021
  Serious: Yes (Life-Threatening, Hospitalization)
  Sender: JOHNSON AND JOHNSON
  Company Number: None

PATIENT
  Age: 41 Year
  Sex: Male
  Weight: 80 kg

DRUGS (2)
  1. RILPIVIRINE [Suspect]
     Active Substance: RILPIVIRINE
     Indication: Asymptomatic HIV infection
     Dosage: ONE INTRAMUSCULAR INJECTION EVERY 2 MONTHS TOGETHER WITH CABOTEGRAVIR. LOT: PIS4J01 EXPIRES 08/27.
     Route: 030
     Dates: start: 20230901, end: 20250801
  2. VOCABRIA [Suspect]
     Active Substance: CABOTEGRAVIR SODIUM
     Indication: Asymptomatic HIV infection
     Dosage: ONE IM ADMINISTRATION EVERY TWO MONTHS
     Route: 030
     Dates: start: 20230901, end: 20250801

REACTIONS (8)
  - Chills [Recovered/Resolved]
  - Oxygen saturation decreased [Recovered/Resolved]
  - Laryngeal stenosis [Recovered/Resolved]
  - Dyspnoea [Recovered/Resolved]
  - Cough [Recovered/Resolved]
  - Urticaria [Recovered/Resolved]
  - Anaphylactic reaction [Recovered/Resolved]
  - Infusion related reaction [Recovered/Resolved]

NARRATIVE: CASE EVENT DATE: 20250801
